FAERS Safety Report 4988540-8 (Version None)
Quarter: 2006Q2

REPORT INFORMATION
  Report Type: 
  Country: None (occurrence: None)
  Receive Date: 20060502
  Receipt Date: 20060426
  Transmission Date: 20061013
  Serious: Yes (Other)
  Sender: FDA-Public Use
  Company Number: US-GLAXOSMITHKLINE-A0603386A

PATIENT
  Sex: Female

DRUGS (4)
  1. ZANTAC [Suspect]
     Dosage: 3TSP THREE TIMES PER DAY
     Route: 048
  2. PREMARIN [Concomitant]
  3. PROVERA [Concomitant]
  4. SYNTHROID [Concomitant]

REACTIONS (6)
  - CLAUSTROPHOBIA [None]
  - DYSPNOEA [None]
  - INSOMNIA [None]
  - MIDDLE INSOMNIA [None]
  - NAUSEA [None]
  - PANIC ATTACK [None]
